FAERS Safety Report 8616452 (Version 4)
Quarter: 2014Q1

REPORT INFORMATION
  Report Type: Spontaneous
  Country: US (occurrence: US)
  Receive Date: 20120615
  Receipt Date: 20140110
  Transmission Date: 20141002
  Serious: Yes (Disabling)
  Sender: FDA-Public Use
  Company Number: US-ASTRAZENECA-2012SE36408

PATIENT
  Age: 53 Year
  Sex: Female
  Weight: 60.8 kg

DRUGS (27)
  1. NEXIUM [Suspect]
     Indication: GASTROOESOPHAGEAL REFLUX DISEASE
     Route: 048
  2. NEXIUM [Suspect]
     Indication: GASTROOESOPHAGEAL REFLUX DISEASE
     Route: 048
     Dates: start: 20120417
  3. NEXIUM [Suspect]
     Indication: GASTROOESOPHAGEAL REFLUX DISEASE
     Route: 048
     Dates: start: 20120730
  4. NEXIUM [Suspect]
     Indication: GASTROOESOPHAGEAL REFLUX DISEASE
     Route: 048
     Dates: start: 20130121
  5. LIPITOR [Concomitant]
  6. LASIX [Concomitant]
  7. TOPROL XL [Concomitant]
     Indication: BLOOD PRESSURE
  8. KLOR-CON [Concomitant]
  9. KLOR-CON [Concomitant]
     Dates: start: 20121121
  10. LEVOXYL [Concomitant]
  11. LEVOXYL [Concomitant]
     Dates: start: 20121224
  12. VITAMIN D [Concomitant]
     Dosage: 1000 I.U ONE A DAY
  13. MULTIVITAMIN [Concomitant]
  14. TRAZADONE [Concomitant]
  15. FOSAMAX [Concomitant]
  16. RANITIDINE [Concomitant]
  17. PREDNISONE [Concomitant]
     Dates: start: 20130506
  18. PREDNISONE [Concomitant]
     Dates: start: 20130506
  19. PREDNISONE [Concomitant]
     Dates: start: 20130506
  20. PREDNISONE [Concomitant]
     Dates: start: 20130506
  21. QUETIAPINE FUMARATE [Concomitant]
     Dates: start: 20130506
  22. ACYCLOVIR [Concomitant]
     Dates: start: 20130409
  23. METOPROLOL TAR [Concomitant]
     Dates: start: 20121029
  24. PROMETHAZINE [Concomitant]
     Indication: NAUSEA
     Dates: start: 20120906
  25. PROMETHAZINE [Concomitant]
     Indication: VOMITING
     Dates: start: 20120906
  26. TIZANIDINE HCL [Concomitant]
     Dates: start: 20121108
  27. CARISOPRODOL [Concomitant]

REACTIONS (6)
  - Nervousness [Unknown]
  - Osteoporosis [Unknown]
  - Multiple fractures [Unknown]
  - Arthritis [Unknown]
  - Calcium deficiency [Unknown]
  - Osteopenia [Unknown]
